FAERS Safety Report 10301606 (Version 1)
Quarter: 2014Q3

REPORT INFORMATION
  Report Type: Spontaneous
  Country: US (occurrence: None)
  Receive Date: 20140710
  Receipt Date: 20140710
  Transmission Date: 20150326
  Serious: Yes (Hospitalization)
  Sender: FDA-Public Use
  Company Number: None

PATIENT
  Age: 69 Year
  Sex: Male
  Weight: 69.7 kg

DRUGS (12)
  1. BYETTA [Concomitant]
     Active Substance: EXENATIDE
  2. TIMOLOL [Concomitant]
     Active Substance: TIMOLOL
  3. FLOMAX [Concomitant]
     Active Substance: TAMSULOSIN HYDROCHLORIDE
  4. FINASTERIDE. [Concomitant]
     Active Substance: FINASTERIDE
  5. SIMVASTATIN. [Concomitant]
     Active Substance: SIMVASTATIN
  6. PAXIL [Concomitant]
     Active Substance: PAROXETINE HYDROCHLORIDE
  7. CABAZITAXEL [Suspect]
     Active Substance: CABAZITAXEL
     Indication: PROSTATE CANCER METASTATIC
     Route: 042
     Dates: start: 20140702
  8. CREON [Concomitant]
     Active Substance: PANCRELIPASE AMYLASE\PANCRELIPASE LIPASE\PANCRELIPASE PROTEASE
  9. OCTREOTIDE [Suspect]
     Active Substance: OCTREOTIDE
     Indication: PROSTATE CANCER METASTATIC
     Route: 030
     Dates: start: 20140702
  10. NEXIUM [Concomitant]
     Active Substance: ESOMEPRAZOLE MAGNESIUM
  11. METFORMIN [Concomitant]
     Active Substance: METFORMIN HYDROCHLORIDE
  12. NATEGLINIDE. [Concomitant]
     Active Substance: NATEGLINIDE

REACTIONS (3)
  - Fall [None]
  - Incoherent [None]
  - Confusional state [None]

NARRATIVE: CASE EVENT DATE: 20140702
